FAERS Safety Report 16975857 (Version 1)
Quarter: 2019Q4

REPORT INFORMATION
  Report Type: Spontaneous
  Country: US (occurrence: US)
  Receive Date: 20190913
  Receipt Date: 20190913
  Transmission Date: 20200122
  Serious: Yes (Hospitalization)
  Sender: FDA-Public Use
  Company Number: None

PATIENT
  Age: 60 Year
  Sex: Female

DRUGS (28)
  1. OMEPRAZOLE. [Concomitant]
     Active Substance: OMEPRAZOLE
  2. PROZAC [Concomitant]
     Active Substance: FLUOXETINE HYDROCHLORIDE
  3. SINGULAIR [Concomitant]
     Active Substance: MONTELUKAST SODIUM
  4. TYLENOL [Concomitant]
     Active Substance: ACETAMINOPHEN
  5. INSULIN [Concomitant]
     Active Substance: INSULIN NOS
  6. IPRATOPIUM [Concomitant]
     Active Substance: IPRATROPIUM BROMIDE
  7. LEVOTHYROXIN [Concomitant]
     Active Substance: LEVOTHYROXINE
  8. METHOTREXATE. [Concomitant]
     Active Substance: METHOTREXATE
  9. HUMIRA [Suspect]
     Active Substance: ADALIMUMAB
     Indication: RHEUMATOID ARTHRITIS
     Dosage: ?          OTHER DOSE:1 PEN;OTHER FREQUENCY:Q14 DAYS;?
     Route: 058
     Dates: start: 20171020
  10. AMLODIPINE [Concomitant]
     Active Substance: AMLODIPINE BESYLATE
  11. CHLORTHALID [Concomitant]
     Active Substance: CHLORTHALIDONE
  12. FOLIC ACID. [Concomitant]
     Active Substance: FOLIC ACID
  13. ESTRACE [Concomitant]
     Active Substance: ESTRADIOL
  14. ESTRADIOL. [Concomitant]
     Active Substance: ESTRADIOL
  15. SPIRIVA [Concomitant]
     Active Substance: TIOTROPIUM BROMIDE MONOHYDRATE
  16. ASMANEX [Concomitant]
     Active Substance: MOMETASONE FUROATE
  17. LOPRESSOR [Concomitant]
     Active Substance: METOPROLOL TARTRATE
  18. NORVASC [Suspect]
     Active Substance: AMLODIPINE BESYLATE
  19. SYMBICORT [Concomitant]
     Active Substance: BUDESONIDE\FORMOTEROL FUMARATE DIHYDRATE
  20. FLUOXETINE [Concomitant]
     Active Substance: FLUOXETINE HYDROCHLORIDE
  21. POTASSIUM [Concomitant]
     Active Substance: POTASSIUM
  22. ADVIL [Concomitant]
     Active Substance: IBUPROFEN
  23. ELIQUIS [Concomitant]
     Active Substance: APIXABAN
  24. METHOTREXATE. [Concomitant]
     Active Substance: METHOTREXATE
  25. MONTELUKAST [Concomitant]
     Active Substance: MONTELUKAST SODIUM
  26. OMEGA-3 ACIDS [Concomitant]
     Active Substance: OMEGA-3 FATTY ACIDS
  27. POT [Concomitant]
  28. PROAIR HFA [Concomitant]
     Active Substance: ALBUTEROL SULFATE

REACTIONS (3)
  - Therapy cessation [None]
  - Knee arthroplasty [None]
  - Atrial fibrillation [None]

NARRATIVE: CASE EVENT DATE: 20190820
